FAERS Safety Report 7718349-3 (Version None)
Quarter: 2011Q3

REPORT INFORMATION
  Report Type: 
  Country: None (occurrence: None)
  Receive Date: 20110830
  Receipt Date: 20110822
  Transmission Date: 20111222
  Serious: Yes (Hospitalization, Other)
  Sender: FDA-Public Use
  Company Number: PHHY2011BR76234

PATIENT
  Sex: Female
  Weight: 100 kg

DRUGS (2)
  1. VOLTAREN [Suspect]
     Indication: BONE PAIN
  2. VOLTAREN [Suspect]
     Indication: RENAL PAIN
     Dosage: 1 DF, BID
     Route: 054

REACTIONS (3)
  - BONE PAIN [None]
  - NEPHROLITHIASIS [None]
  - DEPRESSION [None]
